FAERS Safety Report 7794843-4 (Version None)
Quarter: 2011Q4

REPORT INFORMATION
  Report Type: 
  Country: None (occurrence: None)
  Receive Date: 20111004
  Receipt Date: 20110921
  Transmission Date: 20120403
  Serious: Yes (Other)
  Sender: FDA-Public Use
  Company Number: PHEH2011US02103

PATIENT
  Sex: Male
  Weight: 66.667 kg

DRUGS (3)
  1. FOCALIN XR [Suspect]
     Indication: ATTENTION DEFICIT/HYPERACTIVITY DISORDER
     Dosage: 20 MG, QD
     Route: 048
  2. POLYETHYLENE GLYCOL [Concomitant]
     Dosage: UNK UKN, UNK
  3. TENEX [Concomitant]
     Indication: ATTENTION DEFICIT/HYPERACTIVITY DISORDER
     Dosage: 1 MG, BID
     Route: 048

REACTIONS (5)
  - WITHDRAWAL SYNDROME [None]
  - DIZZINESS [None]
  - MYDRIASIS [None]
  - DRUG INEFFECTIVE [None]
  - TREMOR [None]
